FAERS Safety Report 20235090 (Version 2)
Quarter: 2022Q1

REPORT INFORMATION
  Report Type: Spontaneous
  Country: JP (occurrence: JP)
  Receive Date: 20211227
  Receipt Date: 20220110
  Transmission Date: 20220423
  Serious: Yes (Hospitalization)
  Sender: FDA-Public Use
  Company Number: JP-TAKEDA-2021TUS082124

PATIENT

DRUGS (2)
  1. LIALDA [Suspect]
     Active Substance: MESALAMINE
     Indication: Colitis ulcerative
     Dosage: 1200 MILLIGRAM, Q12H
     Route: 048
  2. LIALDA [Suspect]
     Active Substance: MESALAMINE
     Dosage: 1200 MILLIGRAM, QD
     Route: 048

REACTIONS (1)
  - Hospitalisation [Unknown]
